FAERS Safety Report 18462799 (Version 1)
Quarter: 2020Q4

REPORT INFORMATION
  Report Type: Spontaneous
  Country: US (occurrence: US)
  Receive Date: 20201104
  Receipt Date: 20201104
  Transmission Date: 20210114
  Serious: No
  Sender: FDA-Public Use
  Company Number: US-LEO PHARMA-332789

PATIENT
  Age: 74 Year
  Sex: Female
  Weight: 62.13 kg

DRUGS (4)
  1. L-THYROXINE [Concomitant]
     Active Substance: LEVOTHYROXINE
     Indication: PRODUCT USED FOR UNKNOWN INDICATION
     Dates: start: 2004
  2. TACROLIMUS. [Suspect]
     Active Substance: TACROLIMUS
     Indication: ATROPHIC VULVOVAGINITIS
     Dosage: A LITTLE BIT, SINGLE
     Route: 067
     Dates: start: 20201019, end: 20201019
  3. FAMOTIDINE. [Concomitant]
     Active Substance: FAMOTIDINE
     Indication: PRODUCT USED FOR UNKNOWN INDICATION
     Dates: start: 202002
  4. FLUOROURACIL. [Concomitant]
     Active Substance: FLUOROURACIL
     Indication: PRODUCT USED FOR UNKNOWN INDICATION
     Route: 065
     Dates: start: 202009

REACTIONS (5)
  - Application site haemorrhage [Recovered/Resolved]
  - Product use in unapproved indication [Unknown]
  - Application site pain [Recovered/Resolved]
  - Application site warmth [Recovering/Resolving]
  - Product administered at inappropriate site [Unknown]

NARRATIVE: CASE EVENT DATE: 20201019
